FAERS Safety Report 9243179 (Version 2)
Quarter: 2013Q4

REPORT INFORMATION
  Report Type: Spontaneous
  Country: FR (occurrence: FR)
  Receive Date: 20130419
  Receipt Date: 20131127
  Transmission Date: 20140711
  Serious: Yes (Hospitalization)
  Sender: FDA-Public Use
  Company Number: PHHY2013FR036630

PATIENT
  Age: 7 Year
  Sex: Male

DRUGS (20)
  1. DOXORUBICIN EBEWE [Suspect]
     Indication: BURKITT^S LYMPHOMA
     Dosage: 54 MG, CYCLIC
     Route: 041
     Dates: start: 20121223, end: 20130110
  2. DOXORUBICIN EBEWE [Suspect]
     Dosage: 54 MG, CYCLIC
     Route: 041
     Dates: start: 201301
  3. EUPANTOL [Suspect]
     Indication: PROPHYLAXIS AGAINST GASTROINTESTINAL ULCER
     Dosage: 30 MG, QD
     Route: 042
     Dates: start: 20130123, end: 20130131
  4. EUPANTOL [Suspect]
     Dosage: UNK UKN, UNK
     Dates: start: 201309
  5. EUPANTOL [Suspect]
     Dosage: UNK UKN, UNK
     Dates: start: 201310
  6. METHYLPREDNISOLONE MERCK [Suspect]
     Indication: CHEMOTHERAPY
     Dosage: 1400 MG, QD
     Route: 037
     Dates: start: 20121215, end: 20121227
  7. METHYLPREDNISOLONE MERCK [Suspect]
     Dosage: 30 MG, BID
     Dates: end: 20121221
  8. METHYLPREDNISOLONE MERCK [Suspect]
     Dosage: 45 MG, PER DAY
     Dates: end: 20121226
  9. METHYLPREDNISOLONE MERCK [Suspect]
     Dosage: 25 MG, PER DAY
     Dates: start: 20121227, end: 20121227
  10. METHYLPREDNISOLONE MERCK [Suspect]
     Dosage: UNK UKN, UNK
     Dates: start: 201309
  11. VANCOMYCINE MYLAN [Suspect]
     Indication: PYREXIA
     Dosage: 200 MG, Q8H
     Route: 041
     Dates: start: 20130120, end: 20130129
  12. VANCOMYCINE MYLAN [Suspect]
     Indication: FEBRILE BONE MARROW APLASIA
     Dosage: UNK UKN, UNK
     Dates: start: 201309
  13. VANCOMYCINE MYLAN [Suspect]
     Dosage: UNK UKN, UNK
     Dates: start: 201310
  14. FLAGYL [Suspect]
     Indication: PYREXIA
     Dosage: 430 MG, Q8H
     Route: 041
     Dates: start: 20130124, end: 20130128
  15. FLAGYL [Suspect]
     Indication: DIARRHOEA
     Dosage: UNK UKN, UNK
     Dates: start: 201308
  16. ZOVIRAX [Suspect]
     Indication: PYREXIA
     Dates: start: 20130122, end: 20130129
  17. VINCRISTINE [Concomitant]
     Dates: start: 20121215
  18. VINCRISTINE [Concomitant]
     Dates: start: 201301
  19. ENDOXAN [Concomitant]
     Dates: start: 201301
  20. METHOTREXATE [Concomitant]

REACTIONS (2)
  - Pancreatitis [Recovered/Resolved]
  - Lipase increased [Recovered/Resolved]
